FAERS Safety Report 10402045 (Version 15)
Quarter: 2014Q4

REPORT INFORMATION
  Report Type: Report from Study
  Country: FR (occurrence: FR)
  Receive Date: 20140822
  Receipt Date: 20141217
  Transmission Date: 20150528
  Serious: Yes (Other)
  Sender: FDA-Public Use
  Company Number: FR-SA-2014SA110702

PATIENT
  Age: 60 Year
  Sex: Male
  Weight: 59.2 kg

DRUGS (2)
  1. PARACETAMOL [Concomitant]
     Active Substance: ACETAMINOPHEN
     Indication: HEADACHE
  2. CABAZITAXEL [Suspect]
     Active Substance: CABAZITAXEL
     Indication: PRODUCT USED FOR UNKNOWN INDICATION
     Route: 065

REACTIONS (19)
  - Fatigue [Not Recovered/Not Resolved]
  - Vomiting [Unknown]
  - Constipation [Recovered/Resolved]
  - Visual acuity reduced [Unknown]
  - Pain [Not Recovered/Not Resolved]
  - Lacrimation increased [Unknown]
  - Headache [Unknown]
  - Oliguria [Unknown]
  - Nausea [Unknown]
  - Diarrhoea [Recovering/Resolving]
  - Weight decreased [Unknown]
  - Onychomadesis [Not Recovered/Not Resolved]
  - Salivary hypersecretion [Unknown]
  - Dyspnoea [Recovering/Resolving]
  - Decreased appetite [Unknown]
  - Peripheral sensory neuropathy [Not Recovered/Not Resolved]
  - Stomatitis [Recovering/Resolving]
  - Paraesthesia [Unknown]
  - Musculoskeletal chest pain [Unknown]

NARRATIVE: CASE EVENT DATE: 20140601
